FAERS Safety Report 21264241 (Version 5)
Quarter: 2022Q4

REPORT INFORMATION
  Report Type: Spontaneous
  Country: FR (occurrence: FR)
  Receive Date: 20220829
  Receipt Date: 20221027
  Transmission Date: 20230113
  Serious: Yes (Other)
  Sender: FDA-Public Use
  Company Number: FR-OHRE-2022000575

PATIENT
  Age: 95 Year
  Sex: Female

DRUGS (17)
  1. BORTEZOMIB [Suspect]
     Active Substance: BORTEZOMIB
     Indication: Non-Hodgkin^s lymphoma
     Dosage: 1 MILLIGRAM/SQ. METER
     Route: 058
  2. BORTEZOMIB [Suspect]
     Active Substance: BORTEZOMIB
     Indication: Primary amyloidosis
     Dosage: 4 MG/M2, CYCLICAL
     Route: 058
  3. CYCLOPHOSPHAMIDE [Suspect]
     Active Substance: CYCLOPHOSPHAMIDE
     Indication: Non-Hodgkin^s lymphoma
     Dosage: 100 MILLIGRAM
     Route: 048
  4. CYCLOPHOSPHAMIDE [Suspect]
     Active Substance: CYCLOPHOSPHAMIDE
     Indication: Primary amyloidosis
     Dosage: 300 MILLIGRAM, CYCLICAL (
     Route: 048
  5. DEXAMETHASONE [Suspect]
     Active Substance: DEXAMETHASONE
     Indication: Non-Hodgkin^s lymphoma
     Dosage: 10 MILLIGRAM
     Route: 048
  6. DEXAMETHASONE [Suspect]
     Active Substance: DEXAMETHASONE
     Indication: Primary amyloidosis
     Dosage: 40 MILLIGRAM, CYCLICAL
     Route: 048
  7. DEXAMETHASONE [Suspect]
     Active Substance: DEXAMETHASONE
     Dosage: 100 MILLIGRAM
     Route: 065
  8. DARATUMUMAB [Suspect]
     Active Substance: DARATUMUMAB
     Indication: Primary amyloidosis
     Dosage: 16 MILLIGRAM/KILOGRAM ON DAY 1
     Route: 042
  9. DARATUMUMAB [Suspect]
     Active Substance: DARATUMUMAB
     Dosage: 1800 MILLIGRAM FROM DAY 8
     Route: 058
  10. RITUXIMAB [Suspect]
     Active Substance: RITUXIMAB
     Indication: Primary amyloidosis
     Dosage: 375 MILLIGRAM/SQ. METER ON DAY 1
     Route: 065
  11. RITUXIMAB [Suspect]
     Active Substance: RITUXIMAB
     Indication: Lymphoplasmacytoid lymphoma/immunocytoma
     Dosage: 500 MILLIGRAM/SQ. METER
     Route: 065
  12. RITUXIMAB [Suspect]
     Active Substance: RITUXIMAB
     Dosage: 375 MILLIGRAM/SQ. METER
     Route: 065
  13. BENDAMUSTINE [Concomitant]
     Active Substance: BENDAMUSTINE
     Indication: Primary amyloidosis
     Dosage: 50 MILLIGRAM/SQ. METER ON DAY 1 AND DAY 2
     Route: 065
  14. BENDAMUSTINE [Concomitant]
     Active Substance: BENDAMUSTINE
     Indication: Lymphoplasmacytoid lymphoma/immunocytoma
  15. CILGAVIMAB [Concomitant]
     Active Substance: CILGAVIMAB
     Indication: COVID-19
     Dosage: UNK
     Route: 065
  16. COVID-19 vaccine [Concomitant]
     Indication: COVID-19 immunisation
     Dosage: 3 ANTI-SARS-COV-2 VACCINES
     Route: 065
  17. TIXAGEVIMAB [Concomitant]
     Active Substance: TIXAGEVIMAB
     Indication: COVID-19
     Dosage: UNK
     Route: 065

REACTIONS (10)
  - Erysipelas [Unknown]
  - Atrial fibrillation [Unknown]
  - Cardiac failure congestive [Unknown]
  - Acute kidney injury [Unknown]
  - Neutropenia [Unknown]
  - Gout [Unknown]
  - Drug ineffective [Unknown]
  - Off label use [Unknown]
  - Vaccination failure [Unknown]
  - Therapy non-responder [Unknown]
